FAERS Safety Report 20502171 (Version 1)
Quarter: 2022Q1

REPORT INFORMATION
  Report Type: Spontaneous
  Country: US (occurrence: US)
  Receive Date: 20220222
  Receipt Date: 20220222
  Transmission Date: 20220423
  Serious: No
  Sender: FDA-Public Use
  Company Number: US-NOVOPROD-799355

PATIENT
  Age: 62 Year
  Sex: Female

DRUGS (1)
  1. SAXENDA [Suspect]
     Active Substance: LIRAGLUTIDE
     Indication: Product used for unknown indication
     Dosage: 3 MG
     Route: 058
     Dates: start: 2018

REACTIONS (6)
  - Weight increased [Not Recovered/Not Resolved]
  - Depression [Recovered/Resolved]
  - Dyspepsia [Recovered/Resolved]
  - Product communication issue [Recovered/Resolved]
  - Product storage error [Recovered/Resolved]
  - Weight loss poor [Recovered/Resolved]

NARRATIVE: CASE EVENT DATE: 20210301
